FAERS Safety Report 9570877 (Version 1)
Quarter: 2013Q1

REPORT INFORMATION
  Report Type: Spontaneous
  Country: US (occurrence: None)
  Receive Date: 20120918
  Receipt Date: 20120918
  Transmission Date: 20140127
  Serious: Yes (Other)
  Sender: FDA-Public Use
  Company Number: 2012-00492

PATIENT
  Sex: Male

DRUGS (2)
  1. CEFUROXIME AXETIL [Suspect]
     Indication: SINUSITIS
  2. CEFUROXIME AXETIL [Suspect]
     Indication: OROPHARYNGEAL PAIN

REACTIONS (1)
  - Lip swelling [None]
